FAERS Safety Report 6702570-7 (Version None)
Quarter: 2010Q2

REPORT INFORMATION
  Report Type: 
  Country: None (occurrence: None)
  Receive Date: 20100429
  Receipt Date: 20100422
  Transmission Date: 20101027
  Serious: Yes (Other)
  Sender: FDA-Public Use
  Company Number: SE-ABBOTT-09P-150-0601330-00

PATIENT
  Sex: Female
  Weight: 70 kg

DRUGS (5)
  1. HUMIRA [Suspect]
     Indication: DRUG USE FOR UNKNOWN INDICATION
     Dosage: 40 MG EVERY OTHER WEEK
     Dates: start: 20070101, end: 20091007
  2. HUMIRA [Suspect]
     Dates: start: 20091221, end: 20100107
  3. CELEBRA [Concomitant]
     Indication: DRUG USE FOR UNKNOWN INDICATION
  4. SALAZOPYRIN [Concomitant]
     Indication: DRUG USE FOR UNKNOWN INDICATION
  5. ACETAMINOPHEN [Concomitant]
     Indication: DRUG USE FOR UNKNOWN INDICATION

REACTIONS (9)
  - DRY MOUTH [None]
  - DYSPNOEA [None]
  - INSOMNIA [None]
  - NASAL CONGESTION [None]
  - NASAL MUCOSAL DISORDER [None]
  - OTITIS MEDIA [None]
  - RHINORRHOEA [None]
  - SCAB [None]
  - SNORING [None]
